FAERS Safety Report 9213089 (Version 1)
Quarter: 2013Q1

REPORT INFORMATION
  Report Type: Spontaneous
  Country: US (occurrence: None)
  Receive Date: 20120820
  Receipt Date: 20120820
  Transmission Date: 20140127
  Serious: No
  Sender: FDA-Public Use
  Company Number: 1000036890

PATIENT
  Sex: Female

DRUGS (2)
  1. VIIBRYD [Suspect]
     Dosage: 10 MG 1 IN 1D
     Dates: start: 20120625, end: 20120701
  2. VIIBRYD [Concomitant]
     Dosage: 20 MG 1 IN 1 D
     Dates: start: 20120702, end: 20120705

REACTIONS (2)
  - Decreased interest [None]
  - Ageusia [None]
